FAERS Safety Report 13831501 (Version 14)
Quarter: 2019Q2

REPORT INFORMATION
  Report Type: Report from Study
  Country: CO (occurrence: CO)
  Receive Date: 20170803
  Receipt Date: 20190402
  Transmission Date: 20190711
  Serious: Yes (Hospitalization, Other)
  Sender: FDA-Public Use
  Company Number: PHHY2017CO113684

PATIENT
  Age: 46 Year
  Sex: Male
  Weight: 86 kg

DRUGS (10)
  1. GLIVEC [Suspect]
     Active Substance: IMATINIB MESYLATE
     Indication: CHRONIC MYELOID LEUKAEMIA
     Dosage: 1 DF, QD (400 MG)
     Route: 048
     Dates: start: 20041105
  2. BACTRIM [Suspect]
     Active Substance: SULFAMETHOXAZOLE\TRIMETHOPRIM
     Indication: EYE INFECTION
     Dosage: 500 MG, Q12H
     Route: 065
  3. MICOFENOLATO MOFETIL [Concomitant]
     Active Substance: MYCOPHENOLATE MOFETIL
     Indication: PRODUCT USED FOR UNKNOWN INDICATION
     Dosage: UNK
     Route: 065
  4. GLIVEC [Suspect]
     Active Substance: IMATINIB MESYLATE
     Dosage: 1 DF, QOD
     Route: 048
  5. GLIVEC [Suspect]
     Active Substance: IMATINIB MESYLATE
     Dosage: 400 MG, UNK
     Route: 048
     Dates: end: 201711
  6. GLIVEC [Suspect]
     Active Substance: IMATINIB MESYLATE
     Dosage: 400 MG, QD
     Route: 048
  7. CELLCEPT [Concomitant]
     Active Substance: MYCOPHENOLATE MOFETIL\MYCOPHENOLATE MOFETIL HYDROCHLORIDE
     Indication: BONE MARROW TRANSPLANT REJECTION
     Dosage: 500 MG, BID
     Route: 048
  8. GLIVEC [Suspect]
     Active Substance: IMATINIB MESYLATE
     Dosage: 400 MG, QD
     Route: 048
     Dates: start: 20171218
  9. GLIVEC [Suspect]
     Active Substance: IMATINIB MESYLATE
     Dosage: 400 MG, QD
     Route: 048
     Dates: start: 20180610
  10. MYCOPHENOLATE MOFETIL. [Suspect]
     Active Substance: MYCOPHENOLATE MOFETIL
     Indication: PRODUCT USED FOR UNKNOWN INDICATION
     Dosage: 500 MG, UNK
     Route: 065

REACTIONS (14)
  - General physical health deterioration [Unknown]
  - Herpes zoster [Unknown]
  - Blood creatinine increased [Recovered/Resolved]
  - Choking sensation [Unknown]
  - Eye disorder [Unknown]
  - Chronic myeloid leukaemia recurrent [Unknown]
  - White blood cell count increased [Unknown]
  - Cataract [Unknown]
  - Nasopharyngitis [Unknown]
  - Blood creatinine abnormal [Unknown]
  - Eye infection [Recovered/Resolved]
  - Lung infection [Recovering/Resolving]
  - Cough [Unknown]
  - Scar [Recovered/Resolved]

NARRATIVE: CASE EVENT DATE: 20170727
